FAERS Safety Report 25786081 (Version 1)
Quarter: 2025Q3

REPORT INFORMATION
  Report Type: Spontaneous
  Country: EU (occurrence: EU)
  Receive Date: 20250910
  Receipt Date: 20250910
  Transmission Date: 20251020
  Serious: Yes (Other)
  Sender: MACLEODS
  Company Number: EU-MLMSERVICE-20250826-PI624106-00275-1

PATIENT

DRUGS (15)
  1. QUETIAPINE [Suspect]
     Active Substance: QUETIAPINE
     Indication: Neuropsychological symptoms
     Route: 065
  2. QUETIAPINE [Suspect]
     Active Substance: QUETIAPINE
     Indication: Insomnia
  3. TIAPRIDE [Suspect]
     Active Substance: TIAPRIDE
     Indication: Neuropsychological symptoms
     Route: 065
  4. TIAPRIDE [Suspect]
     Active Substance: TIAPRIDE
     Indication: Insomnia
  5. Proaxon [Concomitant]
     Indication: Product used for unknown indication
     Route: 065
  6. PIRACETAM [Concomitant]
     Active Substance: PIRACETAM
     Indication: Product used for unknown indication
     Route: 065
  7. CARBIDOPA\LEVODOPA [Concomitant]
     Active Substance: CARBIDOPA\LEVODOPA
     Indication: Product used for unknown indication
     Route: 065
  8. BENSERAZIDE HYDROCHLORIDE\LEVODOPA [Concomitant]
     Active Substance: BENSERAZIDE HYDROCHLORIDE\LEVODOPA
     Indication: Product used for unknown indication
     Route: 065
  9. PANTOPRAZOLE [Concomitant]
     Active Substance: PANTOPRAZOLE
     Indication: Prophylaxis
     Route: 065
  10. GLUCOPHAGE [Concomitant]
     Active Substance: METFORMIN HYDROCHLORIDE
     Indication: Product used for unknown indication
     Route: 065
  11. Ezehron Duo [Concomitant]
     Indication: Product used for unknown indication
     Route: 065
  12. Devikap [Concomitant]
     Indication: Product used for unknown indication
     Route: 065
  13. Biblok [Concomitant]
     Indication: Product used for unknown indication
     Route: 065
  14. SERTRALINE HYDROCHLORIDE [Concomitant]
     Active Substance: SERTRALINE HYDROCHLORIDE
     Indication: Product used for unknown indication
     Route: 065
  15. Acard [Concomitant]
     Indication: Product used for unknown indication
     Route: 065

REACTIONS (8)
  - Parkinson^s disease [Recovering/Resolving]
  - Product prescribing issue [Recovering/Resolving]
  - Agitation [Recovering/Resolving]
  - Restlessness [Recovering/Resolving]
  - Vertigo [Unknown]
  - Abnormal behaviour [Recovering/Resolving]
  - Constipation [Recovering/Resolving]
  - Dizziness [Recovered/Resolved]
